FAERS Safety Report 9357569 (Version 1)
Quarter: 2013Q2

REPORT INFORMATION
  Report Type: Spontaneous
  Country: SE (occurrence: None)
  Receive Date: 20130617
  Receipt Date: 20130617
  Transmission Date: 20140414
  Serious: Yes (Other)
  Sender: FDA-Public Use
  Company Number: 2013-1996

PATIENT
  Age: 58 Year
  Sex: Female

DRUGS (2)
  1. SOMATULINE [Suspect]
     Indication: NEUROENDOCRINE TUMOUR
     Dates: start: 20130227, end: 20130227
  2. SANDOSTATIN (OCTREOTIDE) [Concomitant]

REACTIONS (3)
  - Rash [None]
  - Rash [None]
  - Rash [None]
